FAERS Safety Report 6164934-2 (Version None)
Quarter: 2009Q2

REPORT INFORMATION
  Report Type: 
  Country: None (occurrence: None)
  Receive Date: 20090423
  Receipt Date: 20090417
  Transmission Date: 20091009
  Serious: Yes (Other)
  Sender: FDA-Public Use
  Company Number: US-BAYER-200912479NA

PATIENT
  Age: 29 Year
  Sex: Female
  Weight: 62 kg

DRUGS (2)
  1. MIRENA [Suspect]
     Indication: LAPAROSCOPY
     Dosage: CONTINUOUS
     Route: 015
     Dates: start: 20080101, end: 20090130
  2. LEXAPRO [Concomitant]
     Dosage: 20 MG/DAY
     Route: 048

REACTIONS (5)
  - ECTOPIC PREGNANCY WITH INTRAUTERINE DEVICE [None]
  - IUCD COMPLICATION [None]
  - PELVIC PAIN [None]
  - POST PROCEDURAL HAEMATOMA [None]
  - POST PROCEDURAL HAEMORRHAGE [None]
